FAERS Safety Report 8918260 (Version 9)
Quarter: 2013Q3

REPORT INFORMATION
  Report Type: Report from Study
  Country: US (occurrence: US)
  Receive Date: 20121120
  Receipt Date: 20130814
  Transmission Date: 20140515
  Serious: Yes (Other)
  Sender: FDA-Public Use
  Company Number: US-PFIZER INC-2012253680

PATIENT
  Age: 48 Year
  Sex: Female
  Weight: 98.9 kg

DRUGS (3)
  1. TOFACITINIB CITRATE [Suspect]
     Indication: PSORIASIS
     Dosage: 10 MG, 2X/DAY
     Route: 048
     Dates: start: 20120711, end: 20121010
  2. FISH OIL [Concomitant]
     Indication: NUTRITIONAL SUPPLEMENTATION
     Dosage: 1000 MG, 2X/DAY
     Route: 048
     Dates: start: 20110805
  3. T-GEL (2% NEUTAR) [Concomitant]
     Indication: PSORIASIS
     Dosage: 1 APP, AS NEEDED
     Route: 061
     Dates: start: 1994

REACTIONS (1)
  - Sarcoma [Recovered/Resolved]
